FAERS Safety Report 7655634-8 (Version None)
Quarter: 2011Q3

REPORT INFORMATION
  Report Type: 
  Country: None (occurrence: None)
  Receive Date: 20110804
  Receipt Date: 20110729
  Transmission Date: 20111222
  Serious: Yes (Other)
  Sender: FDA-Public Use
  Company Number: US-SANOFI-AVENTIS-2011SA049308

PATIENT
  Sex: Male

DRUGS (1)
  1. AMBIEN CR [Suspect]
     Route: 048

REACTIONS (2)
  - PRODUCT FORMULATION ISSUE [None]
  - BLOOD TEST ABNORMAL [None]
